FAERS Safety Report 14915422 (Version 1)
Quarter: 2018Q2

REPORT INFORMATION
  Report Type: Spontaneous
  Country: JP (occurrence: JP)
  Receive Date: 20180518
  Receipt Date: 20180518
  Transmission Date: 20180711
  Serious: Yes (Death, Hospitalization, Other)
  Sender: FDA-Public Use
  Company Number: PHHY2018JP002729

PATIENT
  Age: 62 Year
  Sex: Male

DRUGS (12)
  1. LANSOPRAZOLE. [Concomitant]
     Active Substance: LANSOPRAZOLE
     Indication: CARDIAC SARCOIDOSIS
     Dosage: 15 MG, QD
     Route: 065
  2. AMIODARONE [Suspect]
     Active Substance: AMIODARONE
     Indication: CARDIAC SARCOIDOSIS
     Dosage: 150 MG, QD
     Route: 065
  3. HYDROCORTANCYL [Concomitant]
     Active Substance: PREDNISONE
     Indication: VENTRICULAR TACHYCARDIA
  4. AMIODARONE [Suspect]
     Active Substance: AMIODARONE
     Indication: VENTRICULAR TACHYCARDIA
  5. LANSOPRAZOLE. [Concomitant]
     Active Substance: LANSOPRAZOLE
     Indication: VENTRICULAR TACHYCARDIA
  6. PREDNISOLONE. [Concomitant]
     Active Substance: PREDNISOLONE
     Indication: VENTRICULAR TACHYCARDIA
  7. HYDROCORTANCYL [Concomitant]
     Active Substance: PREDNISONE
     Indication: CARDIAC SARCOIDOSIS
     Dosage: 10 MG, QD
     Route: 065
  8. ENALAPRIL [Concomitant]
     Active Substance: ENALAPRIL
     Indication: VENTRICULAR TACHYCARDIA
  9. ENALAPRIL [Concomitant]
     Active Substance: ENALAPRIL
     Indication: CARDIAC SARCOIDOSIS
     Dosage: 5 MG, QD
     Route: 065
  10. METOPROLOL. [Concomitant]
     Active Substance: METOPROLOL
     Indication: CARDIAC SARCOIDOSIS
     Dosage: 20 MG, QD
     Route: 065
  11. METOPROLOL. [Concomitant]
     Active Substance: METOPROLOL
     Indication: VENTRICULAR TACHYCARDIA
  12. PREDNISOLONE. [Concomitant]
     Active Substance: PREDNISOLONE
     Indication: CARDIAC SARCOIDOSIS
     Dosage: 10 MG, QD
     Route: 065

REACTIONS (12)
  - Pleural effusion [Unknown]
  - Cardiomegaly [Unknown]
  - Hepatic cirrhosis [Fatal]
  - Oedema [Unknown]
  - Ascites [Unknown]
  - Splenomegaly [Unknown]
  - Steatohepatitis [Unknown]
  - Hypoalbuminaemia [Unknown]
  - Hepatic failure [Fatal]
  - Hepatotoxicity [Fatal]
  - Malaise [Unknown]
  - Thrombocytopenia [Unknown]
